FAERS Safety Report 17519387 (Version 1)
Quarter: 2020Q1

REPORT INFORMATION
  Report Type: Spontaneous
  Country: US (occurrence: US)
  Receive Date: 20200310
  Receipt Date: 20200310
  Transmission Date: 20200409
  Serious: No
  Sender: FDA-Public Use
  Company Number: US-ALLERGAN-1934576US

PATIENT
  Age: 59 Year
  Sex: Female
  Weight: 99.77 kg

DRUGS (1)
  1. ESTRACE [Suspect]
     Active Substance: ESTRADIOL
     Indication: VULVOVAGINAL DRYNESS
     Dosage: PEA SIZE AMOUNT
     Route: 067
     Dates: start: 20190819, end: 20190821

REACTIONS (4)
  - Pain [Recovered/Resolved]
  - Muscle spasms [Recovering/Resolving]
  - Wrong technique in product usage process [Unknown]
  - Haemorrhage [Not Recovered/Not Resolved]
